FAERS Safety Report 7072709-5 (Version None)
Quarter: 2010Q4

REPORT INFORMATION
  Report Type: 
  Country: None (occurrence: None)
  Receive Date: 20101029
  Receipt Date: 20101020
  Transmission Date: 20110411
  Serious: Yes (Death)
  Sender: FDA-Public Use
  Company Number: US-NOVOPROD-316852

PATIENT
  Age: 23 Year
  Sex: Female

DRUGS (2)
  1. NOVOSEVEN RT [Suspect]
     Indication: POSTPARTUM HAEMORRHAGE
     Dosage: UNK
     Dates: start: 20100101, end: 20100101
  2. HEPARIN [Suspect]
     Indication: FACTOR V LEIDEN MUTATION
     Dosage: UNK
     Dates: start: 20100101, end: 20100101

REACTIONS (1)
  - EXSANGUINATION [None]
